FAERS Safety Report 6277788-0 (Version None)
Quarter: 2009Q3

REPORT INFORMATION
  Report Type: 
  Country: None (occurrence: None)
  Receive Date: 20090717
  Receipt Date: 20090717
  Transmission Date: 20100115
  Serious: No
  Sender: FDA-Public Use
  Company Number: None

PATIENT
  Age: 36 Year
  Sex: Female
  Weight: 63.5036 kg

DRUGS (1)
  1. SKELAXIN [Suspect]
     Indication: NERVE COMPRESSION
     Dosage: PO
     Route: 048
     Dates: start: 20080101, end: 20090601

REACTIONS (3)
  - PRURITUS [None]
  - RASH [None]
  - SUNBURN [None]
